FAERS Safety Report 5252245-9 (Version None)
Quarter: 2007Q1

REPORT INFORMATION
  Report Type: 
  Country: None (occurrence: None)
  Receive Date: 20070227
  Receipt Date: 20070227
  Transmission Date: 20070707
  Serious: Yes (Other)
  Sender: FDA-Public Use
  Company Number: None

PATIENT
  Sex: Female
  Weight: 58.9676 kg

DRUGS (4)
  1. CLONAZEPAM [Suspect]
     Indication: ANXIETY
     Dosage: 0.25 FOR FIRST THREE DAYS TWICE A DAY PO 0.5 THEREAFTER TWICE A DAY PO
     Route: 048
     Dates: start: 20070218, end: 20070220
  2. CLONAZEPAM [Suspect]
     Indication: PALPITATIONS
     Dosage: 0.25 FOR FIRST THREE DAYS TWICE A DAY PO 0.5 THEREAFTER TWICE A DAY PO
     Route: 048
     Dates: start: 20070218, end: 20070220
  3. CLONAZEPAM [Suspect]
     Indication: ANXIETY
     Dosage: 0.25 FOR FIRST THREE DAYS TWICE A DAY PO 0.5 THEREAFTER TWICE A DAY PO
     Route: 048
     Dates: start: 20070221, end: 20070224
  4. CLONAZEPAM [Suspect]
     Indication: PALPITATIONS
     Dosage: 0.25 FOR FIRST THREE DAYS TWICE A DAY PO 0.5 THEREAFTER TWICE A DAY PO
     Route: 048
     Dates: start: 20070221, end: 20070224

REACTIONS (2)
  - GAIT DISTURBANCE [None]
  - MUSCULAR WEAKNESS [None]
